FAERS Safety Report 8167938-3 (Version None)
Quarter: 2012Q1

REPORT INFORMATION
  Report Type: 
  Country: None (occurrence: None)
  Receive Date: 20120222
  Receipt Date: 20120208
  Transmission Date: 20120608
  Serious: Yes (Other)
  Sender: FDA-Public Use
  Company Number: DSJ-2012-02529

PATIENT
  Age: 7 Decade
  Sex: Female

DRUGS (6)
  1. BENICAR [Suspect]
     Indication: HYPERTENSION
     Dosage: 40 MG (40 MG, 1 IN 1 D), PER ORAL
     Route: 048
     Dates: start: 20100101
  2. NITRENDIPINE (NITRENDIPINE) (NITRENDIPINE) [Suspect]
     Indication: PRODUCT USED FOR UNKNOWN INDICATION
     Dosage: 10 MG (10 MG, 1 IN 1 D), PER ORAL
     Route: 048
     Dates: start: 20100101
  3. ISOSORBIDE DINITRATE [Concomitant]
  4. HYDROCHLOROTHIAZIDE/ AMILORIDE (HYDROCHLOROTHIAZIDE, AMILORIDE HYDROCH [Concomitant]
  5. TRIMETAZIDINE (TRIMETAZIDINE) (TRIMETAZIDINE) [Suspect]
     Indication: PRODUCT USED FOR UNKNOWN INDICATION
     Dosage: 70 MG (35 MG, 2 IN 1 D), PER ORAL
     Route: 048
     Dates: start: 20100101
  6. SIMVASTATIN [Suspect]
     Indication: HYPERCHOLESTEROLAEMIA
     Dosage: 20 MG (20 MG, 1 IN 1 D), PER ORAL
     Route: 048
     Dates: start: 20100101, end: 20120101

REACTIONS (6)
  - VISION BLURRED [None]
  - CATARACT [None]
  - DRUG INEFFECTIVE [None]
  - HEPATIC STEATOSIS [None]
  - BLOOD PRESSURE SYSTOLIC INCREASED [None]
  - PAIN IN EXTREMITY [None]
